FAERS Safety Report 12521090 (Version 1)
Quarter: 2016Q3

REPORT INFORMATION
  Report Type: Spontaneous
  Country: SE (occurrence: SE)
  Receive Date: 20160701
  Receipt Date: 20160701
  Transmission Date: 20161109
  Serious: Yes (Life-Threatening, Disabling)
  Sender: FDA-Public Use
  Company Number: SE-009507513-1606SWE013811

PATIENT
  Age: 50 Year
  Sex: Female

DRUGS (18)
  1. BEHEPAN [Concomitant]
     Active Substance: HYDROXOCOBALAMIN
  2. KALEORID [Concomitant]
     Active Substance: POTASSIUM CHLORIDE
  3. HYDROCHLOROTHIAZIDE. [Suspect]
     Active Substance: HYDROCHLOROTHIAZIDE
     Indication: OEDEMA PERIPHERAL
     Route: 048
     Dates: start: 2009, end: 20160108
  4. SERTRALINE HYDROCHLORIDE. [Suspect]
     Active Substance: SERTRALINE HYDROCHLORIDE
     Indication: DEPRESSION
     Dosage: 1 TABLET IN THE MORNING
     Route: 048
     Dates: start: 20160517, end: 20160605
  5. SERTRALINE HYDROCHLORIDE. [Suspect]
     Active Substance: SERTRALINE HYDROCHLORIDE
     Indication: ANXIETY
  6. MIRTAZAPINE. [Suspect]
     Active Substance: MIRTAZAPINE
     Dosage: 2 TABLETS
     Route: 048
     Dates: start: 20150324, end: 20160605
  7. BETOLVIDON [Suspect]
     Active Substance: CYANOCOBALAMIN
     Indication: DOPAMINERGIC DRUG THERAPY
     Dosage: UNK UNK, QD
     Route: 048
     Dates: start: 20151130, end: 20160606
  8. FOLACIN [Suspect]
     Active Substance: FOLIC ACID
     Indication: DOPAMINERGIC DRUG THERAPY
     Route: 048
  9. CARBIDOPA (+) LEVODOPA [Suspect]
     Active Substance: CARBIDOPA\LEVODOPA
     Indication: PARKINSON^S DISEASE
     Dosage: INTESTINAL GEL (DUODOPA)
     Dates: start: 20151130
  10. LASIX [Suspect]
     Active Substance: FUROSEMIDE
     Indication: OEDEMA
     Dosage: PROLONGED-RELEASE CAPSULE, HARD, PRN
  11. OPRYMEA [Suspect]
     Active Substance: PRAMIPEXOLE DIHYDROCHLORIDE
     Indication: PARKINSON^S DISEASE
     Route: 048
     Dates: start: 20151130, end: 20160408
  12. OMEPRAZOLE. [Suspect]
     Active Substance: OMEPRAZOLE
  13. DEVITRE [Suspect]
     Active Substance: CHOLECALCIFEROL
     Indication: VITAMIN D DEFICIENCY
     Dosage: 2 TABLETS PER DAY
     Route: 048
     Dates: end: 20160607
  14. VITAMIN D [Concomitant]
     Active Substance: CHOLECALCIFEROL
  15. SINEMET [Suspect]
     Active Substance: CARBIDOPA\LEVODOPA
     Indication: PARKINSON^S DISEASE
     Dosage: 2 PROLONGED-RELEASE TABLET ONCE AT NIGHT-TIME
     Route: 048
     Dates: start: 20121103
  16. SELEGILINE [Suspect]
     Active Substance: SELEGILINE
     Indication: PARKINSON^S DISEASE
     Dosage: 10 MG, QD
     Route: 048
     Dates: start: 20121103, end: 20160601
  17. ORALOVITE [Suspect]
     Active Substance: ASCORBIC ACID\NIACINAMIDE\PYRIDOXINE\RIBOFLAVIN\THIAMINE
     Indication: DOPAMINERGIC DRUG THERAPY
     Dosage: UNK UNK, TID
     Route: 048
     Dates: start: 20151130, end: 20160606
  18. PRAMIPEXOLE. [Suspect]
     Active Substance: PRAMIPEXOLE
     Indication: PARKINSON^S DISEASE
     Dosage: 3 TABLETS PER DAY
     Route: 048
     Dates: start: 201411, end: 20151130

REACTIONS (5)
  - Hyponatraemia [Recovered/Resolved]
  - Rhabdomyolysis [Recovered/Resolved]
  - Toxicity to various agents [Recovered/Resolved]
  - Neuroleptic malignant syndrome [Recovered/Resolved]
  - Hypomagnesaemia [Recovered/Resolved]

NARRATIVE: CASE EVENT DATE: 20121103
